FAERS Safety Report 12252799 (Version 2)
Quarter: 2016Q2

REPORT INFORMATION
  Report Type: Report from Study
  Country: GR (occurrence: GR)
  Receive Date: 20160411
  Receipt Date: 20160528
  Transmission Date: 20160815
  Serious: Yes (Death)
  Sender: FDA-Public Use
  Company Number: GR-AMGEN-GRCNI2016044869

PATIENT
  Age: 53 Year
  Sex: Female

DRUGS (4)
  1. CALCIORAL D3 [Concomitant]
     Dosage: 500 MG/400 IU
     Route: 048
  2. DENOSUMAB [Suspect]
     Active Substance: DENOSUMAB
     Indication: METASTASES TO BONE
     Dosage: 120 UNK, QMO
     Route: 058
     Dates: start: 20140812, end: 20151114
  3. NAVELBINE [Concomitant]
     Active Substance: VINORELBINE TARTRATE
     Dosage: 50 MG, 3 TIMES/WK
     Dates: start: 20150919
  4. VINORELBINE [Concomitant]
     Active Substance: VINORELBINE\VINORELBINE TARTRATE
     Dosage: 50 MG, 3 TIMES/WK
     Route: 048
     Dates: start: 20150814, end: 20151101

REACTIONS (1)
  - Death [Fatal]

NARRATIVE: CASE EVENT DATE: 20151128
